FAERS Safety Report 11106601 (Version 1)
Quarter: 2015Q2

REPORT INFORMATION
  Report Type: Spontaneous
  Country: US (occurrence: None)
  Receive Date: 20150511
  Receipt Date: 20150511
  Transmission Date: 20150821
  Serious: No
  Sender: FDA-Public Use
  Company Number: None

PATIENT
  Age: 50 Year
  Sex: Female
  Weight: 92.99 kg

DRUGS (2)
  1. LAMISIL [Suspect]
     Active Substance: TERBINAFINE HYDROCHLORIDE
     Indication: FUNGAL INFECTION
     Dosage: 1,  ONCE DAILY, TAKEN BY MOUTH
     Route: 048
     Dates: start: 20150310, end: 20150325
  2. LAMISIL [Suspect]
     Active Substance: TERBINAFINE HYDROCHLORIDE
     Indication: NAIL INFECTION
     Dosage: 1,  ONCE DAILY, TAKEN BY MOUTH
     Route: 048
     Dates: start: 20150310, end: 20150325

REACTIONS (3)
  - Dysgeusia [None]
  - Gingival pain [None]
  - Alanine aminotransferase increased [None]

NARRATIVE: CASE EVENT DATE: 20150325
